FAERS Safety Report 13063148 (Version 2)
Quarter: 2016Q4

REPORT INFORMATION
  Report Type: Spontaneous
  Country: US (occurrence: US)
  Receive Date: 20161227
  Receipt Date: 20161229
  Transmission Date: 20170207
  Serious: Yes (Other)
  Sender: FDA-Public Use
  Company Number: US-SUN PHARMACEUTICAL INDUSTRIES LTD-2016US-130090

PATIENT
  Sex: Female

DRUGS (1)
  1. IMATINIB [Suspect]
     Active Substance: IMATINIB
     Indication: CHRONIC MYELOID LEUKAEMIA
     Dosage: 6 DF, DAILY
     Route: 065
     Dates: start: 201602, end: 2016

REACTIONS (3)
  - Cytogenetic abnormality [Unknown]
  - Product substitution issue [Unknown]
  - Drug ineffective [Unknown]
